FAERS Safety Report 23129608 (Version 1)
Quarter: 2023Q4

REPORT INFORMATION
  Report Type: Spontaneous
  Country: US (occurrence: None)
  Receive Date: 20231030
  Receipt Date: 20231030
  Transmission Date: 20240109
  Serious: Yes (unspecified)
  Sender: FDA-Public Use
  Company Number: None

PATIENT
  Age: 54 Year
  Sex: Male
  Weight: 83.25 kg

DRUGS (2)
  1. TETRAHYDROZOLINE HYDROCHLORIDE [Suspect]
     Active Substance: TETRAHYDROZOLINE HYDROCHLORIDE
     Indication: Eye irritation
     Dosage: OTHER QUANTITY : 1 DROP(S);?FREQUENCY : EVERY 8 HOURS;?
     Route: 047
     Dates: start: 20210103, end: 20230101
  2. TETRAHYDROZOLINE HYDROCHLORIDE [Suspect]
     Active Substance: TETRAHYDROZOLINE HYDROCHLORIDE
     Indication: Eye pruritus

REACTIONS (2)
  - Vision blurred [None]
  - Glaucoma [None]

NARRATIVE: CASE EVENT DATE: 20220101
